FAERS Safety Report 8509626-7 (Version None)
Quarter: 2012Q3

REPORT INFORMATION
  Report Type: 
  Country: None (occurrence: None)
  Receive Date: 20120713
  Receipt Date: 20120709
  Transmission Date: 20120928
  Serious: Yes (Hospitalization)
  Sender: FDA-Public Use
  Company Number: US-JNJFOC-20120704322

PATIENT
  Sex: Male
  Weight: 59.3 kg

DRUGS (19)
  1. DOXORUBICIN HYDROCHLORIDE [Suspect]
     Route: 042
  2. DEXAMETHASONE [Suspect]
     Route: 065
  3. THALIDOMIDE [Suspect]
     Route: 065
     Dates: end: 20120617
  4. CYCLOPHOSPHAMIDE [Suspect]
     Indication: MULTIPLE MYELOMA
     Route: 065
  5. OXYCONTIN [Concomitant]
     Dosage: HAS BEEN TAKING FOR OVER A YEAR
     Route: 065
  6. CISPLATIN [Suspect]
     Route: 065
  7. ETOPOSIDE [Suspect]
     Indication: MULTIPLE MYELOMA
     Route: 065
  8. NEURONTIN [Concomitant]
     Route: 065
  9. CISPLATIN [Suspect]
     Indication: MULTIPLE MYELOMA
     Route: 065
     Dates: end: 20120617
  10. CYCLOPHOSPHAMIDE [Suspect]
     Route: 065
     Dates: end: 20120617
  11. ZOFRAN [Concomitant]
     Route: 065
     Dates: start: 20120430
  12. DOXORUBICIN HYDROCHLORIDE [Suspect]
     Indication: MULTIPLE MYELOMA
     Route: 042
     Dates: end: 20120617
  13. ETOPOSIDE [Suspect]
     Route: 065
     Dates: end: 20120617
  14. DEXAMETHASONE [Suspect]
     Indication: MULTIPLE MYELOMA
     Route: 065
     Dates: end: 20120617
  15. THALIDOMIDE [Suspect]
     Indication: MULTIPLE MYELOMA
     Route: 065
  16. UNKNOWN MEDICATION [Concomitant]
     Indication: MEDICAL DIET
     Route: 065
     Dates: start: 20120627
  17. VELCADE [Suspect]
     Indication: MULTIPLE MYELOMA
     Route: 065
     Dates: end: 20120617
  18. VELCADE [Suspect]
     Route: 065
  19. PERCOCET [Concomitant]
     Route: 065

REACTIONS (7)
  - PNEUMONIA PRIMARY ATYPICAL [None]
  - PERFORMANCE STATUS DECREASED [None]
  - OESOPHAGITIS [None]
  - TOXIC NEUROPATHY [None]
  - PNEUMOCYSTIS JIROVECI PNEUMONIA [None]
  - ENTEROCOCCAL SEPSIS [None]
  - PANCYTOPENIA [None]
